FAERS Safety Report 24924186 (Version 2)
Quarter: 2025Q2

REPORT INFORMATION
  Report Type: Spontaneous
  Country: GB (occurrence: GB)
  Receive Date: 20250204
  Receipt Date: 20250609
  Transmission Date: 20250716
  Serious: Yes (Death, Other)
  Sender: MYLAN
  Company Number: GB-MYLANLABS-2024M1084957

PATIENT
  Age: 71 Year
  Sex: Male

DRUGS (17)
  1. CLOZARIL [Suspect]
     Active Substance: CLOZAPINE
     Indication: Schizophrenia
  2. CLOZARIL [Suspect]
     Active Substance: CLOZAPINE
  3. CLOZARIL [Suspect]
     Active Substance: CLOZAPINE
     Dates: start: 20240904, end: 20240906
  4. CLOZARIL [Suspect]
     Active Substance: CLOZAPINE
  5. CLOZARIL [Suspect]
     Active Substance: CLOZAPINE
  6. METHOTREXATE [Concomitant]
     Active Substance: METHOTREXATE
     Indication: Endocrine ophthalmopathy
  7. ATORVASTATIN [Concomitant]
     Active Substance: ATORVASTATIN
  8. ATENOLOL [Concomitant]
     Active Substance: ATENOLOL
  9. DIGOXIN [Concomitant]
     Active Substance: DIGOXIN
  10. EPILIM [Concomitant]
     Active Substance: VALPROATE SODIUM
  11. FUROSEMIDE [Concomitant]
     Active Substance: FUROSEMIDE
  12. LANSOPRAZOLE [Concomitant]
     Active Substance: LANSOPRAZOLE
  13. LEVOTHYROXINE [Concomitant]
     Active Substance: LEVOTHYROXINE
  14. METFORMIN [Concomitant]
     Active Substance: METFORMIN HYDROCHLORIDE
  15. APIXABAN [Concomitant]
     Active Substance: APIXABAN
  16. CLONAZEPAM [Concomitant]
     Active Substance: CLONAZEPAM
  17. FOLIC ACID [Concomitant]
     Active Substance: FOLIC ACID

REACTIONS (8)
  - Death [Fatal]
  - Heart failure with preserved ejection fraction [Unknown]
  - Hypotension [Unknown]
  - Somnolence [Unknown]
  - Confusional state [Unknown]
  - Leukocytosis [Unknown]
  - Neutrophilia [Unknown]
  - Therapy cessation [Unknown]

NARRATIVE: CASE EVENT DATE: 20240905
